FAERS Safety Report 8041791-0 (Version None)
Quarter: 2012Q1

REPORT INFORMATION
  Report Type: 
  Country: None (occurrence: None)
  Receive Date: 20120112
  Receipt Date: 20120103
  Transmission Date: 20120608
  Serious: Yes (Hospitalization)
  Sender: FDA-Public Use
  Company Number: US-ACTELION-A-NJ2012-59169

PATIENT

DRUGS (5)
  1. PLAVIX [Concomitant]
  2. TRACLEER [Suspect]
     Indication: PULMONARY ARTERIAL HYPERTENSION
     Dosage: UNK
     Route: 048
     Dates: start: 20100306
  3. LASIX [Concomitant]
  4. COUMADIN [Concomitant]
  5. DIGOXIN [Concomitant]

REACTIONS (2)
  - CHEST PAIN [None]
  - BACK PAIN [None]
